FAERS Safety Report 8053637-5 (Version None)
Quarter: 2012Q1

REPORT INFORMATION
  Report Type: 
  Country: None (occurrence: None)
  Receive Date: 20120118
  Receipt Date: 20120113
  Transmission Date: 20120608
  Serious: Yes (Other)
  Sender: FDA-Public Use
  Company Number: US-PFIZER INC-2012010967

PATIENT
  Sex: Female
  Weight: 64.399 kg

DRUGS (9)
  1. ACETYLSALICYLIC ACID [Concomitant]
     Dosage: 81 MG, UNK
  2. SYNTHROID [Concomitant]
     Dosage: 0.25 UG, UNK
  3. NEURONTIN [Suspect]
     Indication: FIBROMYALGIA
  4. PRAVACHOL [Concomitant]
     Dosage: 40 MG, UNK
  5. HYDROCHLOROTHIAZIDE [Concomitant]
     Dosage: 25 MG, UNK
  6. LOPRESSOR [Concomitant]
     Dosage: 100 MG, UNK
  7. NEURONTIN [Suspect]
     Indication: MUSCLE SPASMS
     Dosage: 300 MG, 3X/DAY
     Route: 048
     Dates: start: 20110401
  8. NEURONTIN [Suspect]
     Indication: HEADACHE
  9. LORTAB [Concomitant]
     Indication: HEADACHE
     Dosage: 7.5/500 MG, UNK

REACTIONS (4)
  - MEMORY IMPAIRMENT [None]
  - PAIN IN EXTREMITY [None]
  - BREAST CANCER [None]
  - ALOPECIA [None]
